FAERS Safety Report 5745849-8 (Version None)
Quarter: 2008Q2

REPORT INFORMATION
  Report Type: 
  Country: None (occurrence: None)
  Receive Date: 20080520
  Receipt Date: 20080512
  Transmission Date: 20081010
  Serious: Yes (Hospitalization)
  Sender: FDA-Public Use
  Company Number: E2090-00428-SPO-JP

PATIENT
  Age: 33 Year
  Sex: Female
  Weight: 51 kg

DRUGS (5)
  1. ZONISAMIDE [Suspect]
     Dosage: 200 MG, ORAL
     Route: 048
     Dates: start: 20060519, end: 20060612
  2. PHENYTOIN [Suspect]
     Dosage: 250 MG, INTRAVENOUS
     Route: 042
     Dates: start: 20060516, end: 20060518
  3. FAMOTIDINE [Concomitant]
  4. FERROMIA (FERROUS CITRATE) [Concomitant]
  5. PHENOBARBITAL TAB [Concomitant]

REACTIONS (3)
  - AGRANULOCYTOSIS [None]
  - DRUG RASH WITH EOSINOPHILIA AND SYSTEMIC SYMPTOMS [None]
  - WHITE BLOOD CELL COUNT DECREASED [None]
